FAERS Safety Report 23751983 (Version 1)
Quarter: 2024Q2

REPORT INFORMATION
  Report Type: Spontaneous
  Country: PL (occurrence: PL)
  Receive Date: 20240417
  Receipt Date: 20240417
  Transmission Date: 20240716
  Serious: Yes (Other)
  Sender: FDA-Public Use
  Company Number: PL-JNJFOC-20240436036

PATIENT

DRUGS (1)
  1. SUDAFED [Suspect]
     Active Substance: PSEUDOEPHEDRINE HYDROCHLORIDE
     Indication: Product used for unknown indication
     Route: 065

REACTIONS (5)
  - Drug dependence [Unknown]
  - Nasal mucosal disorder [Unknown]
  - Epistaxis [Unknown]
  - Nasal congestion [Unknown]
  - Dyspnoea [Unknown]
